FAERS Safety Report 18081024 (Version 4)
Quarter: 2022Q1

REPORT INFORMATION
  Report Type: Spontaneous
  Country: FR (occurrence: FR)
  Receive Date: 20200728
  Receipt Date: 20220331
  Transmission Date: 20220423
  Serious: Yes (Hospitalization, Other)
  Sender: FDA-Public Use
  Company Number: NVSC2020FR209670

PATIENT
  Sex: Female

DRUGS (19)
  1. GABAPENTIN [Suspect]
     Active Substance: GABAPENTIN
     Indication: Epilepsy
     Dosage: 1200 MG, QD
     Route: 048
     Dates: start: 199510
  2. GABAPENTIN [Suspect]
     Active Substance: GABAPENTIN
     Dosage: 3 DF
     Route: 048
     Dates: start: 19960116
  3. GABAPENTIN [Suspect]
     Active Substance: GABAPENTIN
     Dosage: 3 DF (STRENGTH 400 MG)
     Route: 048
     Dates: start: 1997
  4. GABAPENTIN [Suspect]
     Active Substance: GABAPENTIN
     Dosage: 400 MG, QD ( 1 TABLET IN THE EVENING)
     Route: 048
     Dates: end: 200803
  5. GABAPENTIN [Suspect]
     Active Substance: GABAPENTIN
     Dosage: 900 MG
     Route: 048
  6. GABAPENTIN [Suspect]
     Active Substance: GABAPENTIN
     Dosage: 3 DF, QD(400 MG)
     Route: 065
     Dates: start: 19960824
  7. GABAPENTIN [Suspect]
     Active Substance: GABAPENTIN
     Dosage: 3 DF, QD (400 MG)
     Route: 065
     Dates: start: 19990222
  8. VALPROATE SODIUM [Suspect]
     Active Substance: VALPROATE SODIUM
     Indication: Epilepsy
     Dosage: 2 DF, QD (STRENGTH 500 MG )
     Route: 048
     Dates: start: 199411
  9. VALPROATE SODIUM [Suspect]
     Active Substance: VALPROATE SODIUM
     Dosage: 750 MG, Q12H (750MG MORNING AND EVENING)
     Route: 048
     Dates: start: 19950224
  10. VALPROATE SODIUM [Suspect]
     Active Substance: VALPROATE SODIUM
     Dosage: 1.5 G
     Route: 048
     Dates: start: 19951027
  11. VALPROATE SODIUM [Suspect]
     Active Substance: VALPROATE SODIUM
     Dosage: 3 DF, QD (STRENGTH 500 MG)
     Route: 048
     Dates: start: 1997, end: 201601
  12. VALPROATE SODIUM [Suspect]
     Active Substance: VALPROATE SODIUM
     Dosage: 1000 MG, QD
     Route: 048
     Dates: start: 201601
  13. VALPROATE SODIUM [Suspect]
     Active Substance: VALPROATE SODIUM
     Dosage: 3 DF, QD (STRENGTH 500 MG)
     Route: 048
     Dates: start: 201601
  14. VALPROATE SODIUM [Suspect]
     Active Substance: VALPROATE SODIUM
     Dosage: 3 DF, QD (STRENGTH 500 MG)
     Route: 048
     Dates: end: 201601
  15. VALPROATE SODIUM [Suspect]
     Active Substance: VALPROATE SODIUM
     Dosage: 3 DF, QD
     Route: 048
     Dates: start: 19960824
  16. VALPROATE SODIUM [Suspect]
     Active Substance: VALPROATE SODIUM
     Dosage: 2 DF, QD  (500 MG)
     Route: 065
     Dates: start: 19990222
  17. VALPROATE SODIUM [Suspect]
     Active Substance: VALPROATE SODIUM
     Dosage: 1 DF, BID (500 MG STRENGTH)
     Route: 065
     Dates: start: 19951010
  18. FOLIC ACID [Concomitant]
     Active Substance: FOLIC ACID
     Indication: Product used for unknown indication
     Dosage: UNK
     Route: 065
  19. LORATADINE [Concomitant]
     Active Substance: LORATADINE
     Indication: Asthma
     Dosage: UNK
     Route: 065

REACTIONS (16)
  - Epilepsy [Unknown]
  - Cerebellar ataxia [Unknown]
  - Epilepsy [Unknown]
  - Loss of consciousness [Unknown]
  - Speech disorder [Unknown]
  - Balance disorder [Unknown]
  - Disturbance in attention [Recovered/Resolved]
  - Stress [Unknown]
  - Polycystic ovaries [Unknown]
  - Influenza like illness [Unknown]
  - Irritability [Unknown]
  - Fatigue [Unknown]
  - Malaise [Unknown]
  - Headache [Recovered/Resolved]
  - Exposure during pregnancy [Unknown]
  - Somnolence [Unknown]

NARRATIVE: CASE EVENT DATE: 19940817
